FAERS Safety Report 9976912 (Version 1)
Quarter: 2014Q1

REPORT INFORMATION
  Report Type: Report from Study
  Country: US (occurrence: US)
  Receive Date: 20140306
  Receipt Date: 20140306
  Transmission Date: 20141002
  Serious: No
  Sender: FDA-Public Use
  Company Number: US-ABBVIE-13P-163-1164866-00

PATIENT
  Age: 19 Year
  Sex: Female

DRUGS (18)
  1. HUMIRA [Suspect]
     Indication: COLITIS ULCERATIVE
     Dates: start: 20130816, end: 20130816
  2. HUMIRA [Suspect]
     Dates: start: 20130829, end: 20130829
  3. HUMIRA [Suspect]
     Dates: start: 20130912
  4. HUMIRA [Suspect]
     Dates: start: 20130923
  5. PREDNISONE [Concomitant]
     Indication: PRODUCT USED FOR UNKNOWN INDICATION
     Dosage: FOR 2 WEEKS TAPERED
  6. PREDNISONE [Concomitant]
     Dosage: FOR 2 WEEKS TAPERED
  7. PREDNISONE [Concomitant]
     Dosage: FOR 2 WEEKS TAPERED
  8. PREDNISONE [Concomitant]
     Dosage: FOR 2 WEEKS TAPERED
  9. PREDNISONE [Concomitant]
     Dosage: FOR 2 WEEKS TAPERED
     Dates: end: 201310
  10. KETOCONAZOLE [Concomitant]
     Indication: PRODUCT USED FOR UNKNOWN INDICATION
     Dosage: FACIAL CREAM
  11. DESONIDE [Concomitant]
     Indication: PRODUCT USED FOR UNKNOWN INDICATION
  12. JUNEL [Concomitant]
     Indication: CONTRACEPTION
     Dosage: DAILY
  13. CALCIUM [Concomitant]
     Indication: PRODUCT USED FOR UNKNOWN INDICATION
     Dosage: OVER THE COUNTER
  14. MULTIVITAMIN [Concomitant]
     Indication: PRODUCT USED FOR UNKNOWN INDICATION
     Dosage: OVER THE COUNTER
  15. FISH OIL [Concomitant]
     Indication: PRODUCT USED FOR UNKNOWN INDICATION
     Dosage: OVER THE COUNTER
  16. GLUTAMINE [Concomitant]
     Indication: PRODUCT USED FOR UNKNOWN INDICATION
     Dosage: OVER THE COUNTER
  17. CULTURELLE [Concomitant]
     Indication: PRODUCT USED FOR UNKNOWN INDICATION
     Dosage: OTC: 1 TAB QD SUN, T, TH, SAT + 2 TABS QD M, W, + F
  18. OMEPRAZOLE [Concomitant]
     Indication: GASTROOESOPHAGEAL REFLUX DISEASE
     Dosage: 20 MG DAILY TAKEN WITH THE HIGHER DOSES OF PREDNISONE

REACTIONS (2)
  - Diarrhoea [Not Recovered/Not Resolved]
  - Erythema multiforme [Not Recovered/Not Resolved]
